FAERS Safety Report 4456234-3 (Version None)
Quarter: 2004Q3

REPORT INFORMATION
  Report Type: 
  Country: None (occurrence: None)
  Receive Date: 20040920
  Receipt Date: 20040902
  Transmission Date: 20050211
  Serious: Yes (Hospitalization)
  Sender: FDA-Public Use
  Company Number: 209042

PATIENT
  Age: 69 Year
  Sex: Female
  Weight: 43 kg

DRUGS (13)
  1. HERCEPTIN [Suspect]
     Indication: BREAST CANCER METASTATIC
     Dosage: SEE IMAGE
     Route: 042
     Dates: start: 20031027, end: 20040203
  2. HERCEPTIN [Suspect]
     Indication: BREAST CANCER METASTATIC
     Dosage: SEE IMAGE
     Route: 042
     Dates: start: 20040708
  3. DOCETAXEL (DOCETAXEL) [Suspect]
     Dosage: 100 MG/M2, Q3W
     Dates: start: 20031028, end: 20040120
  4. DECADRON [Concomitant]
  5. ATIVAN [Concomitant]
  6. ZOFRAN [Concomitant]
  7. PROCHLORPERAZINE [Concomitant]
  8. REMERON [Concomitant]
  9. ZYPREXA [Concomitant]
  10. LIPITOR [Concomitant]
  11. SYNTHROID [Concomitant]
  12. OXAZEPAM [Concomitant]
  13. COUMADIN [Concomitant]

REACTIONS (3)
  - DELUSIONAL DISORDER, PERSECUTORY TYPE [None]
  - HYPERTENSION [None]
  - MAJOR DEPRESSION [None]
